FAERS Safety Report 6840960-2 (Version None)
Quarter: 2010Q3

REPORT INFORMATION
  Report Type: 
  Country: None (occurrence: None)
  Receive Date: 20100714
  Receipt Date: 20070621
  Transmission Date: 20110219
  Serious: Yes (Other)
  Sender: FDA-Public Use
  Company Number: US-PFIZER INC-2007052170

PATIENT
  Sex: Male

DRUGS (2)
  1. CHANTIX [Suspect]
     Indication: SMOKING CESSATION THERAPY
     Dosage: EVERY DAY
     Dates: start: 20070501, end: 20070601
  2. ALL OTHER THERAPEUTIC PRODUCTS [Concomitant]

REACTIONS (6)
  - CRYING [None]
  - DEPRESSED MOOD [None]
  - DEPRESSION [None]
  - DRUG INEFFECTIVE [None]
  - SUICIDAL IDEATION [None]
  - YAWNING [None]
